FAERS Safety Report 8343230-9 (Version None)
Quarter: 2012Q2

REPORT INFORMATION
  Report Type: 
  Country: None (occurrence: None)
  Receive Date: 20120508
  Receipt Date: 20120423
  Transmission Date: 20120825
  Serious: Yes (Death, Hospitalization, Other)
  Sender: FDA-Public Use
  Company Number: MX-RANBAXY-2012RR-55801

PATIENT
  Age: 78 Year
  Sex: Female

DRUGS (6)
  1. LISINOPRIL AND HYDROCHLOROTHIAZIDE [Suspect]
     Indication: PRODUCT USED FOR UNKNOWN INDICATION
     Dosage: 20/12.5 MG/DAY
     Route: 065
  2. LERCANIDIPINE [Suspect]
     Indication: PRODUCT USED FOR UNKNOWN INDICATION
     Dosage: 10 MG/DAY
     Route: 065
  3. METFORMIN HCL [Suspect]
     Indication: TYPE 2 DIABETES MELLITUS
     Dosage: 850 MG/ 8H
     Route: 065
  4. ACENOCOUMAROL [Suspect]
     Indication: PRODUCT USED FOR UNKNOWN INDICATION
     Route: 065
  5. GLIPIZIDE [Suspect]
     Indication: PRODUCT USED FOR UNKNOWN INDICATION
     Dosage: 5 MG/DAY
     Route: 065
  6. IBUPROFEN [Suspect]
     Indication: BONE PAIN
     Dosage: 600 MG, TID
     Route: 065

REACTIONS (2)
  - DRUG INTERACTION [None]
  - LACTIC ACIDOSIS [None]
